FAERS Safety Report 7781628-8 (Version None)
Quarter: 2011Q3

REPORT INFORMATION
  Report Type: 
  Country: None (occurrence: None)
  Receive Date: 20110927
  Receipt Date: 20110915
  Transmission Date: 20111222
  Serious: Yes (Hospitalization)
  Sender: FDA-Public Use
  Company Number: GB-JNJFOC-20110902289

PATIENT
  Age: 68 Year
  Sex: Female

DRUGS (9)
  1. ATENOLOL [Concomitant]
     Indication: PRODUCT USED FOR UNKNOWN INDICATION
  2. RIVAROXABAN [Interacting]
     Indication: THROMBOSIS PROPHYLAXIS
     Route: 048
     Dates: start: 20101002, end: 20101003
  3. IBUPROFEN [Suspect]
     Route: 048
  4. IBUPROFEN [Suspect]
     Indication: PROCEDURAL PAIN
     Route: 048
     Dates: start: 20101003, end: 20101003
  5. LEVOTHYROXINE SODIUM [Concomitant]
     Indication: PRODUCT USED FOR UNKNOWN INDICATION
  6. ASPIRIN [Interacting]
     Indication: CARDIOVASCULAR DISORDER
     Route: 048
     Dates: end: 20101003
  7. MIRTAZAPINE [Concomitant]
     Indication: PRODUCT USED FOR UNKNOWN INDICATION
  8. ACETAMINOPHEN AND CODEINE PHOSPHATE [Concomitant]
     Indication: PRODUCT USED FOR UNKNOWN INDICATION
  9. RAMIPRIL [Concomitant]
     Indication: PRODUCT USED FOR UNKNOWN INDICATION

REACTIONS (3)
  - OESOPHAGITIS HAEMORRHAGIC [None]
  - HYPOTENSION [None]
  - DRUG INTERACTION [None]
